FAERS Safety Report 12326050 (Version 5)
Quarter: 2016Q4

REPORT INFORMATION
  Report Type: Report from Study
  Country: US (occurrence: US)
  Receive Date: 20160503
  Receipt Date: 20161115
  Transmission Date: 20170207
  Serious: Yes (Hospitalization, Other)
  Sender: FDA-Public Use
  Company Number: US-AMGEN-USASL2016048655

PATIENT
  Age: 51 Year
  Sex: Female

DRUGS (1)
  1. ENBREL [Suspect]
     Active Substance: ETANERCEPT
     Indication: RHEUMATOID ARTHRITIS
     Dosage: 50 MG, QWK
     Route: 065
     Dates: start: 201411

REACTIONS (10)
  - Abdominal pain [Unknown]
  - Abdominal distension [Unknown]
  - Fungal infection [Unknown]
  - Mass [Unknown]
  - Hepatic cyst [Unknown]
  - Night sweats [Unknown]
  - Pyrexia [Not Recovered/Not Resolved]
  - Rheumatoid arthritis [Unknown]
  - White blood cell count increased [Not Recovered/Not Resolved]
  - Pulmonary mass [Unknown]

NARRATIVE: CASE EVENT DATE: 20160517
